FAERS Safety Report 4704887-4 (Version None)
Quarter: 2005Q2

REPORT INFORMATION
  Report Type: 
  Country: None (occurrence: None)
  Receive Date: 20050208
  Receipt Date: 20050208
  Transmission Date: 20051028
  Serious: Yes (Other)
  Sender: FDA-Public Use
  Company Number: None

PATIENT

DRUGS (1)
  1. RITALIN [Suspect]
     Dosage: 20 MG TID

REACTIONS (1)
  - DRUG INEFFECTIVE [None]
